FAERS Safety Report 19813085 (Version 1)
Quarter: 2021Q3

REPORT INFORMATION
  Report Type: Spontaneous
  Country: US (occurrence: US)
  Receive Date: 20210909
  Receipt Date: 20210909
  Transmission Date: 20211014
  Serious: No
  Sender: FDA-Public Use
  Company Number: None

PATIENT
  Age: 64 Year
  Sex: Male

DRUGS (2)
  1. REGEN?COV [Suspect]
     Active Substance: CASIRIVIMAB\IMDEVIMAB
     Indication: COVID-19
     Dosage: ?          OTHER FREQUENCY:1 DOSE;?
     Route: 041
     Dates: start: 20210909, end: 20210909
  2. NS [Concomitant]
     Active Substance: SODIUM CHLORIDE
     Dates: start: 20210909, end: 20210909

REACTIONS (3)
  - Hypotension [None]
  - Paraesthesia [None]
  - Blood pressure systolic decreased [None]

NARRATIVE: CASE EVENT DATE: 20210909
